FAERS Safety Report 7443855-9 (Version None)
Quarter: 2011Q2

REPORT INFORMATION
  Report Type: 
  Country: None (occurrence: None)
  Receive Date: 20110428
  Receipt Date: 20100124
  Transmission Date: 20111010
  Serious: Yes (Death, Hospitalization, Other)
  Sender: FDA-Public Use
  Company Number: US-BAYER-201012052NA

PATIENT
  Age: 66 Year
  Sex: Male
  Weight: 88.435 kg

DRUGS (9)
  1. INS [INSULIN] [Concomitant]
     Dosage: UNK
     Route: 042
     Dates: start: 20030722
  2. NEOSTIGMINE [Concomitant]
     Dosage: 4 MG, UNK
     Route: 042
     Dates: start: 20030722
  3. TRASYLOL [Suspect]
     Indication: CORONARY ARTERY BYPASS
  4. EPINEPHRINE [Concomitant]
     Dosage: UNK
     Route: 041
     Dates: start: 20030722
  5. POTASSIUM CHLORIDE [Concomitant]
     Dosage: 20 MEQ, UNK
     Route: 042
     Dates: start: 20030722
  6. ROBINUL [Concomitant]
     Dosage: 0.4 MG, UNK
     Route: 042
     Dates: start: 20030722
  7. TRASYLOL [Suspect]
     Indication: AORTIC VALVE REPLACEMENT
     Dosage: UNK
     Route: 042
     Dates: start: 20030722, end: 20030722
  8. PROTAMINE SULFATE [Concomitant]
     Dosage: 250 MG, UNK
     Route: 042
     Dates: start: 20030722
  9. CALCIUM CHLORIDE DIHYDRATE [Concomitant]
     Dosage: 1 G, UNK
     Route: 042
     Dates: start: 20030722

REACTIONS (14)
  - FEAR [None]
  - RENAL IMPAIRMENT [None]
  - MULTI-ORGAN FAILURE [None]
  - STRESS [None]
  - INJURY [None]
  - RENAL INJURY [None]
  - PAIN [None]
  - RENAL FAILURE [None]
  - EMOTIONAL DISTRESS [None]
  - UNEVALUABLE EVENT [None]
  - DEATH [None]
  - SEPTIC SHOCK [None]
  - ANXIETY [None]
  - ANHEDONIA [None]
